FAERS Safety Report 17056404 (Version 3)
Quarter: 2020Q1

REPORT INFORMATION
  Report Type: Spontaneous
  Country: US (occurrence: US)
  Receive Date: 20191121
  Receipt Date: 20200126
  Transmission Date: 20200409
  Serious: No
  Sender: FDA-Public Use
  Company Number: US-AMGEN-USASP2019192773

PATIENT

DRUGS (2)
  1. BLINCYTO [Suspect]
     Active Substance: BLINATUMOMAB
     Dosage: UNK
     Route: 065
  2. BLINCYTO [Suspect]
     Active Substance: BLINATUMOMAB
     Indication: PRODUCT USED FOR UNKNOWN INDICATION
     Dosage: 210 MICROGRAM
     Route: 065

REACTIONS (1)
  - Intercepted product preparation error [Unknown]

NARRATIVE: CASE EVENT DATE: 20191118
